FAERS Safety Report 24306775 (Version 1)
Quarter: 2024Q3

REPORT INFORMATION
  Report Type: Spontaneous
  Country: US (occurrence: US)
  Receive Date: 20240911
  Receipt Date: 20240911
  Transmission Date: 20241016
  Serious: Yes (Other)
  Sender: PFIZER
  Company Number: US-PFIZER INC-202400252877

PATIENT
  Age: 62 Year
  Sex: Female
  Weight: 69.4 kg

DRUGS (1)
  1. PAXLOVID [Suspect]
     Active Substance: NIRMATRELVIR\RITONAVIR
     Indication: COVID-19 treatment
     Dosage: 2 TABLETS TWICE A DAY
     Dates: start: 20240825, end: 20240830

REACTIONS (7)
  - Hypersensitivity [Unknown]
  - Chemical burn of oral cavity [Not Recovered/Not Resolved]
  - Oral pain [Not Recovered/Not Resolved]
  - Dysphonia [Unknown]
  - Dysgeusia [Unknown]
  - Eating disorder [Unknown]
  - Oral mucosal exfoliation [Unknown]

NARRATIVE: CASE EVENT DATE: 20240827
